FAERS Safety Report 6535720-6 (Version None)
Quarter: 2010Q1

REPORT INFORMATION
  Report Type: 
  Country: None (occurrence: None)
  Receive Date: 20100113
  Receipt Date: 20080828
  Transmission Date: 20100710
  Serious: Yes (Other)
  Sender: FDA-Public Use
  Company Number: PHEH2008US11783

PATIENT
  Sex: Male

DRUGS (1)
  1. DIOVAN [Suspect]
     Indication: BLOOD PRESSURE

REACTIONS (3)
  - ANEURYSM REPAIR [None]
  - AORTIC VALVE REPAIR [None]
  - CORONARY ARTERY BYPASS [None]
